FAERS Safety Report 5348427-8 (Version None)
Quarter: 2007Q2

REPORT INFORMATION
  Report Type: 
  Country: None (occurrence: None)
  Receive Date: 20070605
  Receipt Date: 20070525
  Transmission Date: 20071010
  Serious: Yes (Hospitalization)
  Sender: FDA-Public Use
  Company Number: GXKR2007TR04595

PATIENT
  Age: 4 Year
  Sex: Male

DRUGS (1)
  1. CO-TRIMOXAZOLE/SULFAMEXAZOLE [Suspect]
     Indication: EAR INFECTION
     Dosage: 6 2MG/KG TMP, 30-60 MG/KG SMX DAILY, ORAL
     Route: 048

REACTIONS (9)
  - ACUTE LYMPHOCYTIC LEUKAEMIA [None]
  - ANAEMIA MEGALOBLASTIC [None]
  - ANOREXIA [None]
  - BLOOD FOLATE DECREASED [None]
  - DRUG ADMINISTRATION ERROR [None]
  - FATIGUE [None]
  - TACHYCARDIA [None]
  - THROMBOCYTOPENIA [None]
  - VITAMIN B12 DECREASED [None]
